FAERS Safety Report 5019364-3 (Version None)
Quarter: 2006Q2

REPORT INFORMATION
  Report Type: 
  Country: None (occurrence: None)
  Receive Date: 20060530
  Receipt Date: 20060519
  Transmission Date: 20061013
  Serious: Yes (Death, Hospitalization)
  Sender: FDA-Public Use
  Company Number: 200610488BWH

PATIENT
  Age: 67 Year
  Sex: Male
  Weight: 101.8325 kg

DRUGS (1)
  1. SORAFENIB [Suspect]
     Indication: METASTATIC RENAL CELL CARCINOMA
     Dosage: 400 MG, BID, ORAL
     Route: 048
     Dates: start: 20060117, end: 20060124

REACTIONS (4)
  - COLONIC OBSTRUCTION [None]
  - MALIGNANT NEOPLASM PROGRESSION [None]
  - PLEURITIC PAIN [None]
  - SMALL INTESTINAL OBSTRUCTION [None]
